FAERS Safety Report 4372297-8 (Version None)
Quarter: 2004Q2

REPORT INFORMATION
  Report Type: 
  Country: None (occurrence: None)
  Receive Date: 20040602
  Receipt Date: 20040521
  Transmission Date: 20050107
  Serious: No
  Sender: FDA-Public Use
  Company Number: 04H-062-0261707-00

PATIENT
  Age: 48 Year
  Sex: Male

DRUGS (4)
  1. NITROPRESS [Suspect]
     Indication: CEREBROVASCULAR SPASM
     Dosage: 30 MG, SINGLE DOSE, INTRAVENTRICULAR
  2. NIMODIPINE [Concomitant]
  3. PROPOFOL [Concomitant]
  4. FENTANYL [Concomitant]

REACTIONS (1)
  - HYPERTENSION [None]
